FAERS Safety Report 8765184 (Version 1)
Quarter: 2012Q4

REPORT INFORMATION
  Report Type: 
  Country: US (occurrence: US)
  Receive Date: 20120903
  Receipt Date: 20120903
  Transmission Date: 20130627
  Serious: No
  Sender: FDA-Public Use
  Company Number: US-PFIZER INC-2012209010

PATIENT
  Age: 53 Year

DRUGS (8)
  1. LYRICA [Suspect]
     Dosage: 75 mg, UNK
  2. NEURONTIN [Suspect]
     Dosage: 600 mg, UNK
  3. METFORMIN HYDROCHLORIDE [Suspect]
     Dosage: UNK
  4. PROVENTIL HFA [Suspect]
     Dosage: UNK
  5. LASIX [Suspect]
     Dosage: UNK
  6. AMITRIPTYLINE [Suspect]
     Dosage: UNK
  7. ZANAFLEX [Suspect]
     Dosage: UNK
  8. HYOSCYAMINE HYDROBROMIDE [Suspect]
     Dosage: UNK

REACTIONS (1)
  - Drug hypersensitivity [Unknown]
